FAERS Safety Report 5437830-3 (Version None)
Quarter: 2007Q3

REPORT INFORMATION
  Report Type: 
  Country: None (occurrence: None)
  Receive Date: 20070831
  Receipt Date: 20070821
  Transmission Date: 20080115
  Serious: Yes (Other)
  Sender: FDA-Public Use
  Company Number: US-SANOFI-SYNTHELABO-A03200705242

PATIENT
  Sex: Male

DRUGS (6)
  1. MORPHINE [Concomitant]
     Route: 048
  2. AMBIEN [Suspect]
     Indication: INSOMNIA
     Route: 048
     Dates: start: 20010620, end: 20030101
  3. AMBIEN [Suspect]
     Indication: PAIN
     Route: 048
     Dates: start: 20010620, end: 20030101
  4. LEVOTHYROXINE SODIUM [Concomitant]
     Dosage: UNK
     Route: 048
     Dates: start: 20040101
  5. NORCO [Concomitant]
     Dosage: UNK
     Route: 048
  6. SOMA [Concomitant]
     Dosage: UNK
     Route: 048

REACTIONS (2)
  - IMPAIRED DRIVING ABILITY [None]
  - SOMNAMBULISM [None]
